FAERS Safety Report 14340255 (Version 2)
Quarter: 2018Q1

REPORT INFORMATION
  Report Type: Spontaneous
  Country: DE (occurrence: DE)
  Receive Date: 20180101
  Receipt Date: 20180218
  Transmission Date: 20180509
  Serious: Yes (Hospitalization)
  Sender: FDA-Public Use
  Company Number: DE-TEVA-2017-DE-837650

PATIENT
  Age: 14 Year
  Sex: Female
  Weight: 47.3 kg

DRUGS (8)
  1. LENVATINIB [Suspect]
     Active Substance: LENVATINIB
     Indication: OSTEOSARCOMA RECURRENT
     Dosage: 21 MILLIGRAM DAILY; FREQUENCY: 21 MG IN 1 D
     Route: 048
     Dates: start: 20171117, end: 20171120
  2. BACTRIM [Concomitant]
     Active Substance: SULFAMETHOXAZOLE\TRIMETHOPRIM
  3. IFOSFAMIDE. [Suspect]
     Active Substance: IFOSFAMIDE
     Indication: OSTEOSARCOMA RECURRENT
     Dosage: IFOSFAMIDE: QD FOR THREE DAYS PER CYCLE
     Route: 042
     Dates: start: 20171117, end: 20171119
  4. ETOPOSIDE. [Suspect]
     Active Substance: ETOPOSIDE
     Indication: OSTEOSARCOMA RECURRENT
     Dosage: ETOPOSIDE: ONCE DAILY FOR THREE DAYS PER CYCLE
     Route: 042
     Dates: start: 20171117, end: 20171119
  5. GRANISETRON [Concomitant]
     Active Substance: GRANISETRON
  6. DIMENHYDRINATE. [Concomitant]
     Active Substance: DIMENHYDRINATE
  7. MESNA. [Concomitant]
     Active Substance: MESNA
  8. AMPHO-MORONAL [Concomitant]
     Active Substance: AMPHOTERICIN B

REACTIONS (2)
  - Pneumothorax [Recovered/Resolved]
  - Off label use [Unknown]

NARRATIVE: CASE EVENT DATE: 20171120
